FAERS Safety Report 5262317-0 (Version None)
Quarter: 2007Q1

REPORT INFORMATION
  Report Type: 
  Country: None (occurrence: None)
  Receive Date: 20070312
  Receipt Date: 20070227
  Transmission Date: 20070707
  Serious: Yes (Hospitalization)
  Sender: FDA-Public Use
  Company Number: PHBS2007ES02683

PATIENT
  Age: 75 Year
  Sex: Female

DRUGS (10)
  1. OXCARBAZEPINE [Suspect]
     Indication: TRIGEMINAL NEURALGIA
     Dosage: 300 MG/12H
  2. HYDROCHLOROTHIAZIDE [Suspect]
     Indication: HYPERTENSION
  3. GABAPENTIN [Concomitant]
     Indication: TRIGEMINAL NEURALGIA
     Dosage: 1200 MG/8 H
  4. METAMIZOLE [Concomitant]
     Indication: TRIGEMINAL NEURALGIA
     Dosage: 8 G/DAY
     Route: 042
  5. TRAMADOL HCL [Concomitant]
     Indication: TRIGEMINAL NEURALGIA
     Dosage: 300 MG/D
     Route: 042
  6. TOPIRAMATE [Concomitant]
     Indication: TRIGEMINAL NEURALGIA
     Dosage: 25 MG/12 H
     Route: 048
  7. BUPRENORPHINE HCL [Concomitant]
     Indication: TRIGEMINAL NEURALGIA
     Dosage: 35 UG/H
     Route: 062
  8. PETHIDINE [Concomitant]
     Indication: TRIGEMINAL NEURALGIA
     Dosage: 100 MG/8H
     Route: 042
  9. BUPIVACAINE [Concomitant]
     Indication: TRIGEMINAL NEURALGIA
  10. ANGIOTENSIN II ANTAGONISTS [Concomitant]
     Indication: HYPERTENSION

REACTIONS (5)
  - ASTHENIA [None]
  - BLOOD PRESSURE ABNORMAL [None]
  - DRUG INTERACTION POTENTIATION [None]
  - HYPONATRAEMIA [None]
  - MUSCULAR WEAKNESS [None]
